FAERS Safety Report 14230677 (Version 3)
Quarter: 2018Q1

REPORT INFORMATION
  Report Type: Spontaneous
  Country: GB (occurrence: GB)
  Receive Date: 20171128
  Receipt Date: 20180208
  Transmission Date: 20180508
  Serious: Yes (Disabling, Congenital Anomaly, Other)
  Sender: FDA-Public Use
  Company Number: GB-ABBVIE-17P-167-2175708-00

PATIENT
  Sex: Female

DRUGS (1)
  1. EPILIM [Suspect]
     Active Substance: VALPROATE SODIUM
     Indication: MATERNAL EXPOSURE TIMING UNSPECIFIED
     Route: 064

REACTIONS (17)
  - Asthma [Unknown]
  - Learning disability [Unknown]
  - Ill-defined disorder [Unknown]
  - Cerebral palsy [Unknown]
  - Deafness [Unknown]
  - Physical disability [Unknown]
  - Hypermobility syndrome [Unknown]
  - Dysmorphism [Unknown]
  - Talipes [Unknown]
  - Foetal anticonvulsant syndrome [Unknown]
  - Hyperacusis [Unknown]
  - Autism spectrum disorder [Unknown]
  - Dyspraxia [Unknown]
  - Incontinence [Unknown]
  - Speech disorder developmental [Unknown]
  - Developmental delay [Unknown]
  - Foetal exposure during pregnancy [Unknown]
